FAERS Safety Report 6671909-3 (Version None)
Quarter: 2010Q2

REPORT INFORMATION
  Report Type: 
  Country: None (occurrence: None)
  Receive Date: 20100407
  Receipt Date: 20100330
  Transmission Date: 20101027
  Serious: Yes (Other)
  Sender: FDA-Public Use
  Company Number: CH-ELI_LILLY_AND_COMPANY-CH201004000671

PATIENT

DRUGS (3)
  1. FLUOXETINE [Suspect]
     Dosage: 40 MG, EACH MORNING DAYS 2-8
     Route: 048
  2. FLUOXETINE [Suspect]
     Dosage: 20 MG, EACH MORNING, DAYS 9-24
     Route: 048
  3. MOCLOBEMIDE [Concomitant]
     Dosage: 300 MG, DAILY (1/D), DAY 1 AND 24
     Route: 048

REACTIONS (1)
  - FATIGUE [None]
